FAERS Safety Report 5284913-7 (Version None)
Quarter: 2007Q2

REPORT INFORMATION
  Report Type: 
  Country: None (occurrence: None)
  Receive Date: 20070403
  Receipt Date: 20070328
  Transmission Date: 20071010
  Serious: Yes (Hospitalization)
  Sender: FDA-Public Use
  Company Number: 2007AP01878

PATIENT
  Age: 26003 Day
  Sex: Male
  Weight: 101.6 kg

DRUGS (11)
  1. NEXIUM [Suspect]
     Route: 042
     Dates: start: 20070323
  2. AVANDIA [Concomitant]
     Indication: DIABETES MELLITUS
  3. DIAFORMIN [Concomitant]
     Indication: DIABETES MELLITUS
  4. DIMERIL [Concomitant]
     Indication: DIABETES MELLITUS
  5. ATACAND HCT [Concomitant]
     Route: 048
  6. SERETIDE [Concomitant]
     Route: 048
  7. SPIRIVA [Concomitant]
     Route: 048
  8. LASIX [Concomitant]
     Route: 048
  9. TITRACE [Concomitant]
     Route: 048
  10. ZANIDIP [Concomitant]
     Route: 048
  11. VENTOLIN [Concomitant]
     Route: 048

REACTIONS (1)
  - HYPOGLYCAEMIA [None]
